FAERS Safety Report 24943630 (Version 2)
Quarter: 2025Q1

REPORT INFORMATION
  Report Type: Spontaneous
  Country: US (occurrence: US)
  Receive Date: 20250207
  Receipt Date: 20250318
  Transmission Date: 20250409
  Serious: Yes (Hospitalization, Other)
  Sender: FRESENIUS KABI
  Company Number: US-FreseniusKabi-FK202501823

PATIENT
  Sex: Male

DRUGS (14)
  1. FLUDARABINE [Suspect]
     Active Substance: FLUDARABINE PHOSPHATE
     Indication: Myeloid leukaemia
  2. FLUDARABINE [Suspect]
     Active Substance: FLUDARABINE PHOSPHATE
     Dosage: FORM OF ADMIN.: SOLUTION FOR INFUSION?THE FIRST CYCLE OF TREATMENT STARTING WITH LD (C1D-7) WAS ADMI
     Route: 042
     Dates: start: 20240930, end: 20241004
  3. CYTARABINE [Suspect]
     Active Substance: CYTARABINE
     Indication: Myeloid leukaemia
  4. CYTARABINE [Suspect]
     Active Substance: CYTARABINE
     Dosage: FORM OF ADMIN.: SOLUTION FOR INFUSION?THE FIRST CYCLE OF TREATMENT STARTING WITH LD (C1D-7) WAS ADMI
     Route: 042
     Dates: start: 20240930, end: 20241004
  5. METFORMIN HYDROCHLORIDE [Concomitant]
     Active Substance: METFORMIN HYDROCHLORIDE
     Indication: Product used for unknown indication
     Dates: start: 2016
  6. CLONIDINE [Concomitant]
     Active Substance: CLONIDINE
     Indication: Product used for unknown indication
     Dates: start: 2016
  7. MIRTAZAPINE [Concomitant]
     Active Substance: MIRTAZAPINE
     Indication: Product used for unknown indication
     Dates: start: 202407
  8. ALBUTEROL SULFATE [Concomitant]
     Active Substance: ALBUTEROL SULFATE
     Indication: Product used for unknown indication
     Dates: start: 2023
  9. CEFEPIME [Concomitant]
     Active Substance: CEFEPIME HYDROCHLORIDE
     Indication: Product used for unknown indication
     Dates: start: 20241001, end: 20241017
  10. MICAFUNGIN [Concomitant]
     Active Substance: MICAFUNGIN SODIUM
     Indication: Product used for unknown indication
     Dates: start: 20241001, end: 20241022
  11. ACYCLOVIR SODIUM [Concomitant]
     Active Substance: ACYCLOVIR SODIUM
     Indication: Product used for unknown indication
     Dates: start: 20241001
  12. MEROPENEM [Concomitant]
     Active Substance: MEROPENEM
     Indication: Product used for unknown indication
     Dates: start: 20241016, end: 20241028
  13. MEROPENEM [Concomitant]
     Active Substance: MEROPENEM
     Dates: start: 20241105
  14. LIDOCAINE HYDROCHLORIDE [Concomitant]
     Active Substance: LIDOCAINE HYDROCHLORIDE
     Indication: Product used for unknown indication
     Dates: start: 20241014

REACTIONS (8)
  - Febrile neutropenia [Recovered/Resolved]
  - Device related infection [Recovered/Resolved]
  - Enterococcal infection [Recovered/Resolved]
  - Bacteraemia [Recovered/Resolved]
  - Escherichia bacteraemia [Recovered/Resolved]
  - Pneumonia [Recovered/Resolved]
  - Acute kidney injury [Not Recovered/Not Resolved]
  - Headache [Unknown]

NARRATIVE: CASE EVENT DATE: 20241001
